FAERS Safety Report 18586022 (Version 16)
Quarter: 2021Q3

REPORT INFORMATION
  Report Type: Spontaneous
  Country: GB (occurrence: GB)
  Receive Date: 20201207
  Receipt Date: 20210805
  Transmission Date: 20211014
  Serious: Yes (Life-Threatening, Hospitalization, Other)
  Sender: FDA-Public Use
  Company Number: GB-PFIZER INC-2020476282

PATIENT
  Age: 64 Year
  Sex: Male

DRUGS (67)
  1. SIMVASTATIN. [Suspect]
     Active Substance: SIMVASTATIN
     Dosage: 40 MG, DAILY
     Route: 048
  2. THIAMINE. [Suspect]
     Active Substance: THIAMINE
     Dosage: 300 MG, DAILY
     Route: 048
  3. THIAMINE. [Suspect]
     Active Substance: THIAMINE
     Dosage: 300 MG, 1X/DAY
     Route: 048
  4. FOLIC ACID. [Suspect]
     Active Substance: FOLIC ACID
     Dosage: 15 MG, DAILY (5 MG, 3X/DAY)
     Route: 048
  5. PROCYCLIDINE [Suspect]
     Active Substance: PROCYCLIDINE
     Dosage: 15 MILLIGRAM, QD (5 MILLIGRAM, TID)
     Route: 048
  6. PROCYCLIDINE [Suspect]
     Active Substance: PROCYCLIDINE
     Dosage: 15 MILLIGRAM, QD (5 MILLIGRAM, TID)
     Route: 048
  7. SIMVASTATIN. [Suspect]
     Active Substance: SIMVASTATIN
     Indication: HYPERLIPIDAEMIA
     Dosage: 40 MG, 1X/DAY
     Route: 048
  8. SIMVASTATIN. [Suspect]
     Active Substance: SIMVASTATIN
     Dosage: 40 MG, DAILY
     Route: 048
  9. SIMVASTATIN. [Suspect]
     Active Substance: SIMVASTATIN
     Dosage: 40 MG, DAILY
     Route: 048
  10. SIMVASTATIN. [Suspect]
     Active Substance: SIMVASTATIN
     Dosage: 40 MG, DAILY
     Route: 048
  11. SIMVASTATIN. [Suspect]
     Active Substance: SIMVASTATIN
     Dosage: 40 MG, DAILY
     Route: 048
  12. THIAMINE. [Suspect]
     Active Substance: THIAMINE
     Dosage: 300 MG, 1X/DAY
     Route: 048
  13. THIAMINE. [Suspect]
     Active Substance: THIAMINE
     Dosage: 300 MG, 1X/DAY
     Route: 048
  14. FOLIC ACID. [Suspect]
     Active Substance: FOLIC ACID
     Dosage: 5 MG, DAILY
     Route: 048
  15. FOLIC ACID. [Suspect]
     Active Substance: FOLIC ACID
     Dosage: 5 MG, 3X/DAY
     Route: 048
  16. FOLIC ACID. [Suspect]
     Active Substance: FOLIC ACID
     Dosage: 15 MG, 1X/DAY (5 MILLIGRAM, TID (5 MG, (3X/DAY, 15 MILLIGRAM, QD)
     Route: 048
  17. PROCYCLIDINE [Suspect]
     Active Substance: PROCYCLIDINE
     Indication: EXTRAPYRAMIDAL DISORDER
     Dosage: 15 MILLIGRAM, QD (5 MG, 3X/DAY, 15 MILLIGRAM, QD)
     Route: 048
  18. PROCYCLIDINE [Suspect]
     Active Substance: PROCYCLIDINE
     Dosage: 5 MILLIGRAM, THREE TIMES DAILY
     Route: 048
  19. SERTRALINE HCL [Suspect]
     Active Substance: SERTRALINE HYDROCHLORIDE
     Dosage: 40 MG, 1X/DAY
     Route: 048
  20. SERTRALINE HCL [Suspect]
     Active Substance: SERTRALINE HYDROCHLORIDE
     Dosage: 15 MG
     Route: 048
  21. SIMVASTATIN. [Suspect]
     Active Substance: SIMVASTATIN
     Dosage: 40 MG, DAILY
     Route: 048
  22. THIAMINE. [Suspect]
     Active Substance: THIAMINE
     Dosage: 300 MG, DAILY
     Route: 048
  23. THIAMINE. [Suspect]
     Active Substance: THIAMINE
     Dosage: 300 MG, 1X/DAY
     Route: 048
  24. PROCYCLIDINE [Suspect]
     Active Substance: PROCYCLIDINE
     Dosage: 45 MG, QD (15 MG, QD (5 MG, 3X/DAY, 15 MG, QD)
     Route: 048
  25. CLOPIDOGREL HYDROGEN SULFATE [Suspect]
     Active Substance: CLOPIDOGREL BISULFATE
     Indication: TRANSIENT ISCHAEMIC ATTACK
     Dosage: 75 MG, 1X/DAY
     Route: 048
  26. CLOPIDOGREL HYDROGEN SULFATE [Suspect]
     Active Substance: CLOPIDOGREL BISULFATE
     Dosage: 75 MG, DAILY
     Route: 048
  27. SERTRALINE HCL [Suspect]
     Active Substance: SERTRALINE HYDROCHLORIDE
     Dosage: 40 MG, 1X/DAY, QD
     Route: 048
  28. SERTRALINE HCL [Suspect]
     Active Substance: SERTRALINE HYDROCHLORIDE
     Dosage: 150 MG
     Route: 048
  29. THIAMINE. [Suspect]
     Active Substance: THIAMINE
     Dosage: 300 MG, 1X/DAY
     Route: 048
  30. THIAMINE. [Suspect]
     Active Substance: THIAMINE
     Dosage: 300 MG, 1X/DAY
     Route: 048
  31. THIAMINE. [Suspect]
     Active Substance: THIAMINE
     Dosage: 300 MG, 1X/DAY
     Route: 048
  32. FOLIC ACID. [Suspect]
     Active Substance: FOLIC ACID
     Dosage: 15 MG, 1X/DAY (5 MILLIGRAM, TID (5 MG, (3X/DAY, 15 MILLIGRAM, QD)
     Route: 048
  33. PROCYCLIDINE [Suspect]
     Active Substance: PROCYCLIDINE
     Dosage: 5 MG, 3X/DAY
     Route: 048
  34. CLOZARIL [Suspect]
     Active Substance: CLOZAPINE
     Dosage: UNK, 1X/DAY
     Route: 048
     Dates: start: 20090819, end: 202011
  35. SERTRALINE HCL [Suspect]
     Active Substance: SERTRALINE HYDROCHLORIDE
     Dosage: 150 MG
     Route: 048
  36. SIMVASTATIN. [Suspect]
     Active Substance: SIMVASTATIN
     Indication: HYPERLIPIDAEMIA
     Dosage: 40 MG, DAILY
     Route: 048
  37. SIMVASTATIN. [Suspect]
     Active Substance: SIMVASTATIN
     Dosage: 40 MG, DAILY
     Route: 048
  38. SIMVASTATIN. [Suspect]
     Active Substance: SIMVASTATIN
     Dosage: 40 MG, DAILY
     Route: 048
  39. SIMVASTATIN. [Suspect]
     Active Substance: SIMVASTATIN
     Dosage: 40 MG, DAILY
     Route: 048
  40. SIMVASTATIN. [Suspect]
     Active Substance: SIMVASTATIN
     Dosage: 40 MG, DAILY
     Route: 048
  41. THIAMINE. [Suspect]
     Active Substance: THIAMINE
     Dosage: 300 MG, 1X/DAY
     Route: 048
  42. THIAMINE. [Suspect]
     Active Substance: THIAMINE
     Dosage: 300 MG, 1X/DAY
     Route: 048
  43. CLOPIDOGREL HYDROGEN SULFATE [Suspect]
     Active Substance: CLOPIDOGREL BISULFATE
     Dosage: 75 MG, 1X/DAY
     Route: 048
  44. SIMVASTATIN. [Suspect]
     Active Substance: SIMVASTATIN
     Dosage: 40 MG, DAILY
     Route: 048
  45. SIMVASTATIN. [Suspect]
     Active Substance: SIMVASTATIN
     Dosage: 40 MG, DAILY
     Route: 048
  46. FOLIC ACID. [Suspect]
     Active Substance: FOLIC ACID
     Indication: EXTRAPYRAMIDAL DISORDER
     Dosage: 5 MG
     Route: 048
  47. PROCYCLIDINE [Suspect]
     Active Substance: PROCYCLIDINE
     Dosage: 15 MILLIGRAM, QD (5 MILLIGRAM, TID)
     Route: 048
  48. CLOZARIL [Suspect]
     Active Substance: CLOZAPINE
     Indication: SCHIZOPHRENIA
     Dosage: 75 MG, 1X/DAY
     Route: 048
     Dates: start: 20090819, end: 202011
  49. CLOPIDOGREL HYDROGEN SULFATE [Suspect]
     Active Substance: CLOPIDOGREL BISULFATE
     Dosage: 75 MG, 1X/DAY
     Route: 048
  50. CLOPIDOGREL HYDROGEN SULFATE [Suspect]
     Active Substance: CLOPIDOGREL BISULFATE
     Dosage: 75 MG, DAILY (15MG/ML)
     Route: 048
  51. SERTRALINE HCL [Suspect]
     Active Substance: SERTRALINE HYDROCHLORIDE
     Indication: DEPRESSED MOOD
     Dosage: 150 MG
     Route: 048
  52. SIMVASTATIN. [Suspect]
     Active Substance: SIMVASTATIN
     Dosage: 40 MG, DAILY
     Route: 048
  53. SIMVASTATIN. [Suspect]
     Active Substance: SIMVASTATIN
     Dosage: 40 MG, DAILY
     Route: 048
  54. THIAMINE. [Suspect]
     Active Substance: THIAMINE
     Dosage: 300 MG, 1X/DAY
     Route: 048
  55. THIAMINE. [Suspect]
     Active Substance: THIAMINE
     Dosage: 300 MG, DAILY
     Route: 048
  56. PROCYCLIDINE [Suspect]
     Active Substance: PROCYCLIDINE
     Dosage: 5 MG, 3X/DAY
     Route: 048
  57. SIMVASTATIN. [Suspect]
     Active Substance: SIMVASTATIN
     Dosage: 40 MG, DAILY
     Route: 048
  58. THIAMINE. [Suspect]
     Active Substance: THIAMINE
     Indication: VITAMIN B COMPLEX DEFICIENCY
     Dosage: 300 MG, 1X/DAY
     Route: 048
  59. THIAMINE. [Suspect]
     Active Substance: THIAMINE
     Dosage: 300 MG, 1X/DAY
     Route: 048
  60. THIAMINE. [Suspect]
     Active Substance: THIAMINE
     Dosage: UNK
  61. THIAMINE. [Suspect]
     Active Substance: THIAMINE
     Dosage: 300 MG, 1X/DAY
     Route: 048
  62. FOLIC ACID. [Suspect]
     Active Substance: FOLIC ACID
     Indication: BLOOD FOLATE DECREASED
     Dosage: 5 MG
     Route: 048
  63. FOLIC ACID. [Suspect]
     Active Substance: FOLIC ACID
     Dosage: 15 MG, DAILY
     Route: 048
  64. FOLIC ACID. [Suspect]
     Active Substance: FOLIC ACID
     Dosage: 15 MG, DAILY
     Route: 048
  65. CLOZARIL [Suspect]
     Active Substance: CLOZAPINE
     Indication: EXTRAPYRAMIDAL DISORDER
     Dosage: 75 MG, 1X/DAY
     Route: 048
     Dates: start: 20090819, end: 202101
  66. CLOZARIL [Suspect]
     Active Substance: CLOZAPINE
     Dosage: UNK
     Route: 048
  67. CLOPIDOGREL HYDROGEN SULFATE [Suspect]
     Active Substance: CLOPIDOGREL BISULFATE
     Dosage: 75 MG, 1X/DAY
     Route: 048

REACTIONS (3)
  - Product dose omission issue [Unknown]
  - Fall [Unknown]
  - Product use issue [Unknown]

NARRATIVE: CASE EVENT DATE: 20201106
